FAERS Safety Report 10597763 (Version 1)
Quarter: 2014Q4

REPORT INFORMATION
  Report Type: Spontaneous
  Country: US (occurrence: None)
  Receive Date: 20141120
  Receipt Date: 20141120
  Transmission Date: 20150529
  Serious: No
  Sender: FDA-Public Use
  Company Number: None

PATIENT
  Age: 87 Year
  Sex: Female
  Weight: 81.65 kg

DRUGS (10)
  1. COLCHININE [Concomitant]
  2. NOVOLIN 70/30 [Concomitant]
     Active Substance: INSULIN HUMAN
  3. COUMADIN [Concomitant]
     Active Substance: WARFARIN SODIUM
  4. CLONIDINE. [Concomitant]
     Active Substance: CLONIDINE
  5. HYDROLAZINE [Concomitant]
  6. DILTIAZEM [Concomitant]
     Active Substance: DILTIAZEM
  7. DULOLEX [Concomitant]
  8. PLAVIX [Concomitant]
     Active Substance: CLOPIDOGREL BISULFATE
  9. VITAMIN D [Concomitant]
     Active Substance: CHOLECALCIFEROL
  10. LEVOFLOXACIN FILLED @ WALMART-PHARMACY-EAST GODDEN, AZ [Suspect]
     Active Substance: LEVOFLOXACIN
     Indication: PNEUMONIA
     Route: 048
     Dates: start: 20140917, end: 20140920

REACTIONS (6)
  - Seizure [None]
  - Bone pain [None]
  - Arthralgia [None]
  - Pruritus [None]
  - Pain in extremity [None]
  - Dysphonia [None]

NARRATIVE: CASE EVENT DATE: 20140917
